FAERS Safety Report 6220913-8 (Version None)
Quarter: 2009Q2

REPORT INFORMATION
  Report Type: 
  Country: None (occurrence: None)
  Receive Date: 20090610
  Receipt Date: 20090604
  Transmission Date: 20091009
  Serious: Yes (Other)
  Sender: FDA-Public Use
  Company Number: US-ASTRAZENECA-2009UW14028

PATIENT
  Age: 53 Year
  Sex: Male
  Weight: 118.8 kg

DRUGS (2)
  1. CRESTOR [Suspect]
     Indication: CORONARY ARTERY DISEASE
     Route: 048
  2. CRESTOR [Suspect]
     Indication: HYPERLIPIDAEMIA
     Route: 048

REACTIONS (2)
  - BLOOD CREATININE INCREASED [None]
  - RENAL IMPAIRMENT [None]
